FAERS Safety Report 5150980-4 (Version None)
Quarter: 2006Q4

REPORT INFORMATION
  Report Type: 
  Country: None (occurrence: None)
  Receive Date: 20061108
  Receipt Date: 20061026
  Transmission Date: 20070319
  Serious: Yes (Other)
  Sender: FDA-Public Use
  Company Number: 2006132696

PATIENT
  Sex: Female

DRUGS (4)
  1. LYRICA [Suspect]
  2. OXYCODONE HCL [Suspect]
  3. CORTISONE ACETATE [Concomitant]
  4. CHEMOTHERAPY NOS [Concomitant]

REACTIONS (2)
  - DRUG INTERACTION [None]
  - MUSCULAR WEAKNESS [None]
